FAERS Safety Report 5912719-1 (Version None)
Quarter: 2008Q4

REPORT INFORMATION
  Report Type: 
  Country: None (occurrence: None)
  Receive Date: 20081008
  Receipt Date: 20080925
  Transmission Date: 20090506
  Serious: Yes (Hospitalization, Other)
  Sender: FDA-Public Use
  Company Number: US-ELI_LILLY_AND_COMPANY-US200808002112

PATIENT
  Sex: Male
  Weight: 120.18 kg

DRUGS (9)
  1. CYMBALTA [Suspect]
     Indication: DEPRESSION
     Dosage: 20 MG, UNK
     Route: 048
     Dates: start: 20070710
  2. CYMBALTA [Suspect]
     Dosage: 90 MG, UNK
     Dates: start: 20070912
  3. SYNTHROID [Concomitant]
     Indication: HYPOTHYROIDISM
     Dosage: 100 MG, UNK
     Route: 048
     Dates: start: 20070912
  4. NORVASC [Concomitant]
     Indication: HYPERTENSION
     Route: 048
     Dates: start: 20070912
  5. DARVOCET [Concomitant]
     Indication: PAIN
     Dosage: UNK, EVERY 4 HRS
     Route: 048
  6. CELEBREX [Concomitant]
     Indication: ARTHRITIS
     Dosage: 20 MG, UNK
     Route: 048
     Dates: start: 20070710
  7. VYTORIN [Concomitant]
     Indication: HYPERLIPIDAEMIA
     Dosage: 1 D/F, UNK
     Route: 048
  8. ATIVAN [Concomitant]
     Indication: ANXIETY
     Dosage: 0.5 MG, EVERY 8 HRS
     Route: 048
  9. AMITRIPTYLINE HCL [Concomitant]
     Dosage: 25 MG, EACH EVENING
     Route: 048

REACTIONS (5)
  - ANGER [None]
  - CEREBROVASCULAR ACCIDENT [None]
  - DEPRESSION [None]
  - HYPOTONIA [None]
  - WEIGHT INCREASED [None]
